FAERS Safety Report 7607955-2 (Version None)
Quarter: 2011Q3

REPORT INFORMATION
  Report Type: 
  Country: None (occurrence: None)
  Receive Date: 20110712
  Receipt Date: 20110712
  Transmission Date: 20111222
  Serious: Yes (Hospitalization)
  Sender: FDA-Public Use
  Company Number: None

PATIENT
  Age: 71 Year
  Sex: Male
  Weight: 112.3 kg

DRUGS (1)
  1. PREDNISONE [Suspect]
     Dosage: 10 MG OTHER PO
     Route: 048
     Dates: start: 20110422, end: 20110428

REACTIONS (4)
  - HYPERGLYCAEMIA [None]
  - FATIGUE [None]
  - BLOOD UREA INCREASED [None]
  - BLOOD CREATININE INCREASED [None]
